FAERS Safety Report 8668357 (Version 2)
Quarter: 2015Q2

REPORT INFORMATION
  Report Type: Report from Study
  Country: US (occurrence: US)
  Receive Date: 20120717
  Receipt Date: 20150629
  Transmission Date: 20150821
  Serious: Yes (Death)
  Sender: FDA-Public Use
  Company Number: US-ROCHE-1086990

PATIENT
  Sex: Female

DRUGS (8)
  1. LIPITOR [Concomitant]
     Active Substance: ATORVASTATIN CALCIUM
     Route: 048
  2. PORK HEPARIN [Concomitant]
     Dosage: 70 UNITS/ML AT AM; 30 UNITS/ML AT NIGHT
     Route: 065
  3. ASPIRIN. [Concomitant]
     Active Substance: ASPIRIN
     Route: 048
  4. LEVEMIR [Concomitant]
     Active Substance: INSULIN DETEMIR
     Indication: DIABETES MELLITUS
     Route: 065
  5. ZYMAR [Concomitant]
     Active Substance: GATIFLOXACIN
     Route: 065
  6. LUCENTIS [Suspect]
     Active Substance: RANIBIZUMAB
     Indication: DIABETIC RETINOPATHY
     Route: 050
  7. HYDROCHLOROTHIAZIDE. [Concomitant]
     Active Substance: HYDROCHLOROTHIAZIDE
     Route: 065
  8. BETAPACE [Concomitant]
     Active Substance: SOTALOL HYDROCHLORIDE
     Route: 048

REACTIONS (5)
  - Off label use [Unknown]
  - Death [Fatal]
  - Drug dose omission [Unknown]
  - Diabetic retinopathy [Unknown]
  - Macular oedema [Unknown]
